FAERS Safety Report 8116518-4 (Version None)
Quarter: 2012Q1

REPORT INFORMATION
  Report Type: 
  Country: None (occurrence: None)
  Receive Date: 20120206
  Receipt Date: 20120202
  Transmission Date: 20120608
  Serious: No
  Sender: FDA-Public Use
  Company Number: US-PFIZER INC-2012029890

PATIENT
  Sex: Male

DRUGS (3)
  1. RAMIPRIL [Concomitant]
     Indication: HYPERTENSION
     Dosage: 5 MG, DAILY
  2. AVODART [Concomitant]
     Indication: PROSTATOMEGALY
     Dosage: UNK
  3. LIPITOR [Suspect]
     Dosage: 10 MG, DAILY
     Route: 048

REACTIONS (1)
  - BLOOD CHOLESTEROL ABNORMAL [None]
